FAERS Safety Report 17433544 (Version 1)
Quarter: 2020Q1

REPORT INFORMATION
  Report Type: Spontaneous
  Country: FR (occurrence: FR)
  Receive Date: 20200219
  Receipt Date: 20200219
  Transmission Date: 20200409
  Serious: Yes (Other)
  Sender: FDA-Public Use
  Company Number: FR-TEVA-2020-FR-1186712

PATIENT
  Age: 58 Year
  Sex: Male
  Weight: 83 kg

DRUGS (5)
  1. RASAGILINE. [Suspect]
     Active Substance: RASAGILINE
     Indication: PARKINSON^S DISEASE
     Dosage: 1 MG
     Route: 048
     Dates: start: 201809
  2. DOMPERIDONE [Concomitant]
     Active Substance: DOMPERIDONE
  3. LEVODOPA CARBIDOPA TEVA 100 MG/10 MG, COMPRIM? S?CABLE [Suspect]
     Active Substance: CARBIDOPA\LEVODOPA
     Indication: PARKINSON^S DISEASE
     Dosage: 4 DOSAGE FORMS
     Route: 048
     Dates: start: 20190506
  4. LEVODOPA BENSERAZIDE TEVA 50 MG/12,5 MG, G?LULE [Suspect]
     Active Substance: BENSERAZIDE HYDROCHLORIDE\LEVODOPA
     Indication: PARKINSON^S DISEASE
     Dosage: 1 DOSAGE FORMS
     Route: 048
     Dates: start: 201906
  5. ROPINIROLE TEVA LP 4 MG, COMPRIM? ? LIB?RATION PROLONG?E [Suspect]
     Active Substance: ROPINIROLE HYDROCHLORIDE
     Indication: PARKINSON^S DISEASE
     Dosage: 1 DOSAGE FORMS
     Route: 048
     Dates: start: 20190506

REACTIONS (2)
  - Gambling disorder [Not Recovered/Not Resolved]
  - Impulse-control disorder [Not Recovered/Not Resolved]

NARRATIVE: CASE EVENT DATE: 201905
